FAERS Safety Report 6109215-8 (Version None)
Quarter: 2009Q1

REPORT INFORMATION
  Report Type: 
  Country: None (occurrence: None)
  Receive Date: 20090310
  Receipt Date: 20090227
  Transmission Date: 20090719
  Serious: Yes (Other)
  Sender: FDA-Public Use
  Company Number: PHHY2009JP06084

PATIENT
  Sex: Male

DRUGS (4)
  1. CYCLOSPORINE [Suspect]
     Indication: RENAL TRANSPLANT
     Dosage: UNK
     Dates: start: 20070401
  2. SIMULECT [Suspect]
     Indication: RENAL TRANSPLANT
     Dosage: 20 MG
     Route: 042
     Dates: start: 20070401
  3. CELLCEPT [Suspect]
     Indication: RENAL TRANSPLANT
     Dosage: UNK
     Route: 048
     Dates: start: 20070401
  4. METHYLPREDNISOLONE 4MG TAB [Suspect]
     Indication: RENAL TRANSPLANT
     Dosage: UNK
     Dates: start: 20070401

REACTIONS (11)
  - BLOOD CREATINE INCREASED [None]
  - CYTOKINE STORM [None]
  - CYTOMEGALOVIRUS ANTIGEN POSITIVE [None]
  - CYTOMEGALOVIRUS INFECTION [None]
  - HISTIOCYTOSIS HAEMATOPHAGIC [None]
  - KIDNEY TRANSPLANT REJECTION [None]
  - LABORATORY TEST ABNORMAL [None]
  - LOW DENSITY LIPOPROTEIN INCREASED [None]
  - PYREXIA [None]
  - SERUM FERRITIN INCREASED [None]
  - VIRAL INFECTION [None]
